FAERS Safety Report 13726151 (Version 1)
Quarter: 2017Q3

REPORT INFORMATION
  Report Type: Spontaneous
  Country: US (occurrence: US)
  Receive Date: 20170706
  Receipt Date: 20170706
  Transmission Date: 20171127
  Serious: Yes (Other)
  Sender: FDA-Public Use
  Company Number: US-TEVA-782967USA

PATIENT
  Sex: Female

DRUGS (7)
  1. ASPIRIN. [Concomitant]
     Active Substance: ASPIRIN
  2. VITAMIN C [Concomitant]
     Active Substance: ASCORBIC ACID
     Dates: end: 20170622
  3. VITAMIN D [Concomitant]
     Active Substance: CHOLECALCIFEROL
     Dates: end: 20170622
  4. COUMADIN [Concomitant]
     Active Substance: WARFARIN SODIUM
  5. CEFALEXIN [Suspect]
     Active Substance: CEPHALEXIN
     Dosage: 2000 MILLIGRAM DAILY;
     Route: 048
     Dates: start: 201706, end: 20170615
  6. FISH OIL [Concomitant]
     Active Substance: FISH OIL
     Dates: end: 20170622
  7. VITAMIN B12 [Concomitant]
     Active Substance: CYANOCOBALAMIN
     Dates: end: 20170622

REACTIONS (2)
  - Platelet count decreased [Unknown]
  - International normalised ratio increased [Recovered/Resolved]

NARRATIVE: CASE EVENT DATE: 201706
